FAERS Safety Report 18071517 (Version 1)
Quarter: 2020Q3

REPORT INFORMATION
  Report Type: Report from Study
  Country: AR (occurrence: AR)
  Receive Date: 20200727
  Receipt Date: 20200727
  Transmission Date: 20201103
  Serious: Yes (Death)
  Sender: FDA-Public Use
  Company Number: NVSC2020AR168753

PATIENT
  Age: 81 Year
  Sex: Male

DRUGS (3)
  1. TASIGNA [Suspect]
     Active Substance: NILOTINIB
     Dosage: UNK, QD (1 X 200 MG)
     Route: 065
     Dates: start: 202005
  2. TASIGNA [Suspect]
     Active Substance: NILOTINIB
     Dosage: 3 OT, QD
     Route: 048
     Dates: end: 202007
  3. TASIGNA [Suspect]
     Active Substance: NILOTINIB
     Indication: CHRONIC MYELOID LEUKAEMIA
     Dosage: UNK, QD (3 X 200 MG)
     Route: 065
     Dates: start: 202003, end: 202005

REACTIONS (4)
  - Asthenia [Not Recovered/Not Resolved]
  - Death [Fatal]
  - Nervousness [Not Recovered/Not Resolved]
  - Incorrect dose administered [Not Recovered/Not Resolved]

NARRATIVE: CASE EVENT DATE: 202005
